FAERS Safety Report 4313668-5 (Version None)
Quarter: 2004Q1

REPORT INFORMATION
  Report Type: 
  Country: None (occurrence: None)
  Receive Date: 20040305
  Receipt Date: 20040223
  Transmission Date: 20041129
  Serious: Yes (Death)
  Sender: FDA-Public Use
  Company Number: NSADSS2002010224

PATIENT
  Age: 73 Year
  Sex: Female
  Weight: 52.6173 kg

DRUGS (3)
  1. DURAGESIC [Suspect]
     Indication: PAIN
     Dosage: 25 MCG TO 300 MCG EVERY 72 HOURS
     Dates: start: 19990101, end: 20020119
  2. MS CONTIN [Concomitant]
  3. HYDROCODONE (HYDROCODONE) [Concomitant]

REACTIONS (1)
  - DEATH [None]
